FAERS Safety Report 6376291-7 (Version None)
Quarter: 2009Q3

REPORT INFORMATION
  Report Type: 
  Country: None (occurrence: None)
  Receive Date: 20090925
  Receipt Date: 20080618
  Transmission Date: 20100115
  Serious: Yes (Other)
  Sender: FDA-Public Use
  Company Number: US-ASTRAZENECA-2007UW26139

PATIENT
  Age: 384 Month
  Sex: Female
  Weight: 81.6 kg

DRUGS (5)
  1. SEROQUEL [Suspect]
     Indication: BIPOLAR DISORDER
     Route: 048
     Dates: start: 20051229
  2. SEROQUEL [Suspect]
     Route: 048
     Dates: start: 20010701, end: 20060901
  3. ZOLOFT [Concomitant]
     Dates: start: 20051229
  4. TOPROL-XL [Concomitant]
     Route: 048
     Dates: start: 20060904
  5. TRAMADOL [Concomitant]
     Indication: MYALGIA
     Route: 048
     Dates: start: 20090902

REACTIONS (5)
  - DIABETES MELLITUS [None]
  - DRUG EXPOSURE DURING PREGNANCY [None]
  - GESTATIONAL DIABETES [None]
  - TYPE 1 DIABETES MELLITUS [None]
  - TYPE 2 DIABETES MELLITUS [None]
